FAERS Safety Report 4532650-6 (Version None)
Quarter: 2004Q4

REPORT INFORMATION
  Report Type: 
  Country: None (occurrence: None)
  Receive Date: 20041221
  Receipt Date: 20041124
  Transmission Date: 20050328
  Serious: Yes (Other)
  Sender: FDA-Public Use
  Company Number: PHBS2004CA15862

PATIENT
  Age: 65 Year
  Sex: Female

DRUGS (3)
  1. ESTRADOT [Suspect]
     Dosage: 50 UG, UNK
     Dates: start: 20040801, end: 20041001
  2. ESTRADERM [Suspect]
     Route: 062
  3. ESTRADERM [Suspect]
     Dosage: 50 UG, UNK
     Dates: start: 20041001

REACTIONS (8)
  - APPLICATION SITE ERYTHEMA [None]
  - BENIGN BREAST NEOPLASM [None]
  - BREAST TENDERNESS [None]
  - ENDOMETRIAL ABLATION [None]
  - FLUID RETENTION [None]
  - HEADACHE [None]
  - HYSTERECTOMY [None]
  - METRORRHAGIA [None]
